FAERS Safety Report 25492466 (Version 1)
Quarter: 2025Q2

REPORT INFORMATION
  Report Type: Spontaneous
  Country: RU (occurrence: RU)
  Receive Date: 20250630
  Receipt Date: 20250630
  Transmission Date: 20250716
  Serious: Yes (Death)
  Sender: CSL BEHRING
  Company Number: RU-BEH-2025210688

PATIENT
  Age: 70 Year
  Sex: Male

DRUGS (1)
  1. VELPHORO [Suspect]
     Active Substance: SUCROFERRIC OXYHYDROXIDE
     Indication: Blood phosphorus increased
     Dosage: 1 TABLET, TID
     Route: 048

REACTIONS (2)
  - Cerebrovascular accident [Fatal]
  - Diarrhoea [Fatal]
